FAERS Safety Report 23164267 (Version 1)
Quarter: 2023Q4

REPORT INFORMATION
  Report Type: Report from Study
  Country: FR (occurrence: FR)
  Receive Date: 20231109
  Receipt Date: 20231109
  Transmission Date: 20240109
  Serious: Yes (Other)
  Sender: FDA-Public Use
  Company Number: FR-SA-SAC20231107001756

PATIENT
  Age: 51 Year
  Sex: Male

DRUGS (3)
  1. NEXVIAZYME [Suspect]
     Active Substance: AVALGLUCOSIDASE ALFA-NGPT
     Indication: Glycogen storage disease type II
     Dosage: UNK
     Route: 065
     Dates: start: 202110, end: 20230720
  2. UNSPECIFIED INGREDIENT [Suspect]
     Active Substance: UNSPECIFIED INGREDIENT
     Dosage: UNK
  3. POLARAMINE [Concomitant]
     Active Substance: DEXCHLORPHENIRAMINE MALEATE
     Dosage: UNK

REACTIONS (7)
  - Thrombocytopenia [Unknown]
  - Livedo reticularis [Unknown]
  - Lymphopenia [Unknown]
  - Pyrexia [Unknown]
  - Hypertension [Unknown]
  - Tachycardia [Unknown]
  - Dyspnoea [Unknown]

NARRATIVE: CASE EVENT DATE: 20230720
